FAERS Safety Report 26122016 (Version 2)
Quarter: 2025Q4

REPORT INFORMATION
  Report Type: Spontaneous
  Country: CN (occurrence: CN)
  Receive Date: 20251204
  Receipt Date: 20251209
  Transmission Date: 20260118
  Serious: Yes (Life-Threatening, Hospitalization, Disabling)
  Sender: PFIZER
  Company Number: CN-PFIZER INC-PV202500140037

PATIENT
  Age: 60 Year
  Sex: Male
  Weight: 62.5 kg

DRUGS (1)
  1. LORLATINIB [Suspect]
     Active Substance: LORLATINIB
     Indication: Lung adenocarcinoma
     Dosage: 75 MG, 1X/DAY
     Route: 048
     Dates: start: 20221112, end: 20251124

REACTIONS (3)
  - Myocardial infarction [Recovering/Resolving]
  - Hyperlipidaemia [Recovering/Resolving]
  - Blood glucose increased [Recovering/Resolving]

NARRATIVE: CASE EVENT DATE: 20240919
